FAERS Safety Report 26013384 (Version 2)
Quarter: 2025Q4

REPORT INFORMATION
  Report Type: Spontaneous
  Country: US (occurrence: US)
  Receive Date: 20251107
  Receipt Date: 20251116
  Transmission Date: 20260117
  Serious: No
  Sender: SANOFI AVENTIS
  Company Number: US-SA-2025SA330542

PATIENT
  Sex: Female
  Weight: 113.64 kg

DRUGS (1)
  1. DUPIXENT [Suspect]
     Active Substance: DUPILUMAB
     Indication: Dermatitis atopic
     Dosage: 300 MG, QOW
     Route: 058

REACTIONS (6)
  - Chapped lips [Unknown]
  - Lip pain [Unknown]
  - Skin irritation [Unknown]
  - Pain of skin [Unknown]
  - Skin exfoliation [Unknown]
  - Product dose omission issue [Unknown]
